FAERS Safety Report 10207679 (Version 1)
Quarter: 2014Q2

REPORT INFORMATION
  Report Type: Spontaneous
  Country: US (occurrence: US)
  Receive Date: 20140530
  Receipt Date: 20140530
  Transmission Date: 20141212
  Serious: No
  Sender: FDA-Public Use
  Company Number: US-GLAXOSMITHKLINE-A1054504A

PATIENT
  Age: 61 Year
  Sex: Male

DRUGS (5)
  1. VENTOLIN [Suspect]
     Indication: ASTHMA
     Route: 055
     Dates: start: 1998
  2. DIOVAN [Concomitant]
  3. ATENOLOL [Concomitant]
  4. CARDIZEM [Concomitant]
  5. VALIUM [Concomitant]

REACTIONS (1)
  - Drug ineffective [Unknown]
